FAERS Safety Report 22193088 (Version 2)
Quarter: 2023Q2

REPORT INFORMATION
  Report Type: Report from Study
  Country: CN (occurrence: CN)
  Receive Date: 20230410
  Receipt Date: 20230413
  Transmission Date: 20230721
  Serious: Yes (Death)
  Sender: FDA-Public Use
  Company Number: CN-MYLANLABS-2023M1008634

PATIENT
  Age: 38 Year
  Sex: Male
  Weight: 83.7 kg

DRUGS (1)
  1. CELEBREX [Suspect]
     Active Substance: CELECOXIB
     Indication: Pain
     Dosage: 0.4 GRAM (PRN)
     Route: 002
     Dates: start: 20210813, end: 20221217

REACTIONS (1)
  - Paternal exposure during pregnancy [Fatal]

NARRATIVE: CASE EVENT DATE: 20221120
